FAERS Safety Report 7355849-2 (Version None)
Quarter: 2011Q1

REPORT INFORMATION
  Report Type: 
  Country: None (occurrence: None)
  Receive Date: 20110311
  Receipt Date: 20110311
  Transmission Date: 20110831
  Serious: Yes (Other)
  Sender: FDA-Public Use
  Company Number: None

PATIENT
  Age: 71 Year
  Sex: Female
  Weight: 68.0396 kg

DRUGS (1)
  1. CENTRUM SILVER WYETH [Suspect]
     Dosage: ONE TABLET-CHEWABLE ONCE DAILY
     Dates: start: 20100920, end: 20110221

REACTIONS (1)
  - HAEMORRHAGE [None]
